FAERS Safety Report 6968227-2 (Version None)
Quarter: 2010Q3

REPORT INFORMATION
  Report Type: 
  Country: None (occurrence: None)
  Receive Date: 20100907
  Receipt Date: 20100830
  Transmission Date: 20110219
  Serious: Yes (Other)
  Sender: FDA-Public Use
  Company Number: US-ROCHE-707050

PATIENT
  Sex: Female
  Weight: 75.8 kg

DRUGS (6)
  1. BONIVA [Suspect]
     Indication: OSTEOPOROSIS
     Route: 048
     Dates: start: 20080204, end: 20100201
  2. ACTONEL [Suspect]
     Indication: OSTEOPOROSIS
     Route: 048
     Dates: start: 20060601, end: 20080204
  3. FOLIC ACID [Concomitant]
     Indication: RHEUMATOID ARTHRITIS
     Route: 048
  4. METHOTREXATE [Concomitant]
     Indication: RHEUMATOID ARTHRITIS
     Route: 048
  5. MEDROL [Concomitant]
     Indication: RHEUMATOID ARTHRITIS
     Route: 048
  6. DARVOCET-N 100 [Concomitant]
     Indication: PAIN
     Dosage: FREQUENCY: AS NECESSARY (PRN)
     Route: 048

REACTIONS (3)
  - ABSCESS [None]
  - OSTEOMYELITIS [None]
  - OSTEONECROSIS OF JAW [None]
